FAERS Safety Report 17958058 (Version 1)
Quarter: 2020Q2

REPORT INFORMATION
  Report Type: Spontaneous
  Country: US (occurrence: US)
  Receive Date: 20200629
  Receipt Date: 20200629
  Transmission Date: 20200714
  Serious: No
  Sender: FDA-Public Use
  Company Number: US-ASTRAZENECA-2020SE79656

PATIENT
  Sex: Male

DRUGS (1)
  1. BYDUREON BCISE [Suspect]
     Active Substance: EXENATIDE
     Indication: BLOOD GLUCOSE INCREASED
     Route: 058
     Dates: start: 2020

REACTIONS (6)
  - Device issue [Unknown]
  - Decreased activity [Unknown]
  - Incorrect dose administered by device [Unknown]
  - Weight increased [Unknown]
  - Injection site pain [Unknown]
  - Device use issue [Unknown]
